FAERS Safety Report 5843511-4 (Version None)
Quarter: 2008Q3

REPORT INFORMATION
  Report Type: 
  Country: None (occurrence: None)
  Receive Date: 20080808
  Receipt Date: 20080725
  Transmission Date: 20090109
  Serious: Yes (Hospitalization)
  Sender: FDA-Public Use
  Company Number: 2008SP013316

PATIENT
  Age: 31 Year
  Sex: Male

DRUGS (2)
  1. REBETOL [Suspect]
     Indication: HEPATITIS C
     Dates: start: 20060119, end: 20060914
  2. PEGASYS [Suspect]
     Indication: HEPATITIS C
     Dates: start: 20060119, end: 20060914

REACTIONS (3)
  - ECZEMA [None]
  - LYMPHADENOPATHY [None]
  - PYREXIA [None]
